FAERS Safety Report 19020273 (Version 2)
Quarter: 2021Q1

REPORT INFORMATION
  Report Type: Spontaneous
  Country: JP (occurrence: JP)
  Receive Date: 20210317
  Receipt Date: 20210326
  Transmission Date: 20210420
  Serious: Yes (Other)
  Sender: FDA-Public Use
  Company Number: JP-MYLANLABS-2021M1014950

PATIENT
  Age: 58 Year
  Sex: Female

DRUGS (1)
  1. NOLVADEX                           /00388701/ [Suspect]
     Active Substance: TAMOXIFEN CITRATE
     Indication: BREAST CANCER
     Dosage: HAD BEEN PRESCRIBED (UNTIL OCT?2017)
     Route: 048

REACTIONS (3)
  - Fibrosarcoma [Recovered/Resolved]
  - Sarcoma uterus [Recovered/Resolved]
  - Adenomyosis [Recovered/Resolved]
